FAERS Safety Report 21747181 (Version 2)
Quarter: 2025Q1

REPORT INFORMATION
  Report Type: Other
  Country: US (occurrence: US)
  Receive Date: 20221219
  Receipt Date: 20250113
  Transmission Date: 20250409
  Serious: No
  Sender: ALVOGEN
  Company Number: US-ALVOGEN-2022-ALVOGEN-120681

PATIENT
  Sex: Female
  Weight: 1.65 kg

DRUGS (1)
  1. DEXAMETHASONE [Suspect]
     Active Substance: DEXAMETHASONE
     Indication: Atrioventricular block
     Route: 064

REACTIONS (3)
  - Foetal exposure during pregnancy [Unknown]
  - Low birth weight baby [Unknown]
  - Product use in unapproved indication [Unknown]
